FAERS Safety Report 9796454 (Version 1)
Quarter: 2014Q1

REPORT INFORMATION
  Report Type: Spontaneous
  Country: DE (occurrence: DE)
  Receive Date: 20140103
  Receipt Date: 20140103
  Transmission Date: 20141002
  Serious: Yes (Life-Threatening, Hospitalization, Disabling)
  Sender: FDA-Public Use
  Company Number: DE-MYLANLABS-2013S1028753

PATIENT
  Sex: Female
  Weight: 3.9 kg

DRUGS (3)
  1. METOPROLOL [Suspect]
     Route: 064
     Dates: start: 20130610
  2. METOPROLOL [Suspect]
     Route: 064
     Dates: start: 20130705
  3. CANDESARTAN [Suspect]
     Route: 064

REACTIONS (5)
  - Cerebral infarction [Unknown]
  - Renal infarct [Unknown]
  - Vena cava thrombosis [Unknown]
  - Renal impairment neonatal [Unknown]
  - Foetal exposure during pregnancy [Unknown]
